FAERS Safety Report 6264068-2 (Version None)
Quarter: 2009Q3

REPORT INFORMATION
  Report Type: 
  Country: None (occurrence: None)
  Receive Date: 20090710
  Receipt Date: 20090630
  Transmission Date: 20100115
  Serious: Yes (Hospitalization)
  Sender: FDA-Public Use
  Company Number: NL-JNJFOC-20090702546

PATIENT
  Sex: Female

DRUGS (2)
  1. ZALDIAR [Suspect]
     Indication: BACK PAIN
     Route: 048
  2. STEDIRIL [Concomitant]
     Route: 065

REACTIONS (5)
  - DYSPNOEA [None]
  - MUSCULAR WEAKNESS [None]
  - NAUSEA [None]
  - OEDEMA [None]
  - RASH [None]
